FAERS Safety Report 15123799 (Version 1)
Quarter: 2018Q3

REPORT INFORMATION
  Report Type: Spontaneous
  Country: JP (occurrence: JP)
  Receive Date: 20180710
  Receipt Date: 20180710
  Transmission Date: 20181010
  Serious: Yes (Other)
  Sender: FDA-Public Use
  Company Number: JP-ROCHE-2151632

PATIENT
  Age: 60 Year
  Sex: Male

DRUGS (6)
  1. LUCENTIS [Suspect]
     Active Substance: RANIBIZUMAB
     Route: 050
  2. VISUDYNE [Suspect]
     Active Substance: VERTEPORFIN
     Indication: POLYPOIDAL CHOROIDAL VASCULOPATHY
     Dosage: (HALF DOSE)
     Route: 042
     Dates: start: 20130516
  3. LUCENTIS [Suspect]
     Active Substance: RANIBIZUMAB
     Indication: POLYPOIDAL CHOROIDAL VASCULOPATHY
     Route: 050
     Dates: start: 20130207
  4. LUCENTIS [Suspect]
     Active Substance: RANIBIZUMAB
     Route: 050
     Dates: end: 20180315
  5. LUCENTIS [Suspect]
     Active Substance: RANIBIZUMAB
     Route: 050
  6. EYLEA [Concomitant]
     Active Substance: AFLIBERCEPT
     Indication: POLYPOIDAL CHOROIDAL VASCULOPATHY
     Dosage: UNK
     Route: 065

REACTIONS (4)
  - Visual acuity reduced [Unknown]
  - Off label use [Unknown]
  - Castleman^s disease [Unknown]
  - Product use issue [Unknown]

NARRATIVE: CASE EVENT DATE: 20130516
